FAERS Safety Report 23939509 (Version 1)
Quarter: 2024Q2

REPORT INFORMATION
  Report Type: Spontaneous
  Country: US (occurrence: US)
  Receive Date: 20240605
  Receipt Date: 20240605
  Transmission Date: 20240716
  Serious: No
  Sender: FDA-Public Use
  Company Number: US-TAKEDA-2024TUS052332

PATIENT

DRUGS (1)
  1. ICLUSIG [Suspect]
     Active Substance: PONATINIB\PONATINIB HYDROCHLORIDE
     Indication: Acute lymphocytic leukaemia recurrent
     Dosage: UNK
     Route: 065

REACTIONS (2)
  - No adverse event [Unknown]
  - Product prescribing error [Unknown]
